FAERS Safety Report 21792963 (Version 1)
Quarter: 2022Q4

REPORT INFORMATION
  Report Type: Spontaneous
  Country: NL (occurrence: NL)
  Receive Date: 20221229
  Receipt Date: 20221229
  Transmission Date: 20230112
  Serious: No
  Sender: FDA-Public Use
  Company Number: NL-ALKEM LABORATORIES LIMITED-NL-ALKEM-2022-11767

PATIENT
  Sex: Female

DRUGS (4)
  1. SIROLIMUS [Suspect]
     Active Substance: SIROLIMUS
     Indication: Vascular malformation
     Dosage: UNK, HIGHER DOSAGES
     Route: 065
  2. SIROLIMUS [Suspect]
     Active Substance: SIROLIMUS
     Dosage: TARGET LEVELS 3.5-4.5 NG/ML
     Route: 065
  3. SIROLIMUS [Suspect]
     Active Substance: SIROLIMUS
     Dosage: DOSE INCREASED (TARGET LEVELS 6 NG/ML)
     Route: 065
  4. SIROLIMUS [Suspect]
     Active Substance: SIROLIMUS
     Dosage: TREATED WITH LOW DOSE SIROLIMUS WITH TARGET LEVELS RANGING BETWEEN 4 AND 10 NG/ML
     Route: 065

REACTIONS (3)
  - Dysmenorrhoea [Unknown]
  - Dermatitis atopic [Unknown]
  - Aphthous ulcer [Unknown]
